FAERS Safety Report 24553273 (Version 2)
Quarter: 2024Q4

REPORT INFORMATION
  Report Type: Spontaneous
  Country: JP (occurrence: JP)
  Receive Date: 20241028
  Receipt Date: 20241106
  Transmission Date: 20250115
  Serious: Yes (Hospitalization, Other)
  Sender: ALEXION PHARMACEUTICALS
  Company Number: JP-ASTRAZENECA-240013038_013120_P_1

PATIENT
  Age: 81 Year

DRUGS (12)
  1. IMFINZI [Suspect]
     Active Substance: DURVALUMAB
     Indication: Hepatocellular carcinoma
     Dosage: 1500 MILLIGRAM, UNK, FREQUENCY: UNK
  2. IMFINZI [Suspect]
     Active Substance: DURVALUMAB
     Dosage: 1500 MILLIGRAM, UNK, FREQUENCY: UNK
  3. IMFINZI [Suspect]
     Active Substance: DURVALUMAB
     Dosage: 1500 MILLIGRAM, UNK, FREQUENCY: UNK
  4. IMFINZI [Suspect]
     Active Substance: DURVALUMAB
     Dosage: 1500 MILLIGRAM, UNK, FREQUENCY: UNK
  5. IMFINZI [Suspect]
     Active Substance: DURVALUMAB
     Dosage: SECOND DOSE, FREQUENCY: UNK
  6. IMFINZI [Suspect]
     Active Substance: DURVALUMAB
     Dosage: SECOND DOSE, FREQUENCY: UNK
  7. IMFINZI [Suspect]
     Active Substance: DURVALUMAB
     Dosage: SECOND DOSE, FREQUENCY: UNK
  8. IMFINZI [Suspect]
     Active Substance: DURVALUMAB
     Dosage: SECOND DOSE, FREQUENCY: UNK
  9. IMJUDO [Suspect]
     Active Substance: TREMELIMUMAB\TREMELIMUMAB-ACTL
     Indication: Hepatocellular carcinoma
     Dosage: 300 MILLIGRAM, UNK, FREQUENCY: UNK
  10. IMJUDO [Suspect]
     Active Substance: TREMELIMUMAB\TREMELIMUMAB-ACTL
     Dosage: 300 MILLIGRAM, UNK, FREQUENCY: UNK
  11. IMJUDO [Suspect]
     Active Substance: TREMELIMUMAB\TREMELIMUMAB-ACTL
     Dosage: 300 MILLIGRAM, UNK, FREQUENCY: UNK
  12. IMJUDO [Suspect]
     Active Substance: TREMELIMUMAB\TREMELIMUMAB-ACTL
     Dosage: 300 MILLIGRAM, UNK, FREQUENCY: UNK

REACTIONS (3)
  - Diarrhoea [Unknown]
  - Platelet count decreased [Unknown]
  - Performance status decreased [Unknown]
